FAERS Safety Report 8334033-X (Version None)
Quarter: 2012Q1

REPORT INFORMATION
  Report Type: 
  Country: None (occurrence: None)
  Receive Date: 20120328
  Receipt Date: 20100419
  Transmission Date: 20120608
  Serious: Yes (Hospitalization, Other)
  Sender: FDA-Public Use
  Company Number: PHHY2010US22388

PATIENT
  Sex: Male

DRUGS (1)
  1. VALTURNA [Suspect]
     Dosage: 150/160 (UNITS NOT SPECIFIED)

REACTIONS (2)
  - ANGIOEDEMA [None]
  - RASH [None]
